FAERS Safety Report 8470224-5 (Version None)
Quarter: 2012Q2

REPORT INFORMATION
  Report Type: 
  Country: None (occurrence: None)
  Receive Date: 20120621
  Receipt Date: 20120621
  Transmission Date: 20120825
  Serious: Yes (Disabling)
  Sender: FDA-Public Use
  Company Number: None

PATIENT
  Age: 45 Year
  Sex: Female
  Weight: 54.4316 kg

DRUGS (2)
  1. SEROQUEL [Suspect]
     Indication: SCHIZOPHRENIA
     Dosage: 550 TO 600 MILIGRAMS 25MG2XPERDAV550HS PO
     Route: 048
     Dates: start: 19980101, end: 20120620
  2. SEROQUEL [Suspect]
     Indication: BIPOLAR DISORDER
     Dosage: 550 TO 600 MILIGRAMS 25MG2XPERDAV550HS PO
     Route: 048
     Dates: start: 19980101, end: 20120620

REACTIONS (4)
  - DYSPNOEA [None]
  - PARALYSIS [None]
  - OXYGEN SATURATION DECREASED [None]
  - SLEEP APNOEA SYNDROME [None]
